FAERS Safety Report 5230198-7 (Version None)
Quarter: 2007Q1

REPORT INFORMATION
  Report Type: 
  Country: None (occurrence: None)
  Receive Date: 20070201
  Receipt Date: 20070118
  Transmission Date: 20070707
  Serious: Yes (Hospitalization)
  Sender: FDA-Public Use
  Company Number: SPV1-2006-02134

PATIENT
  Age: 23 Year
  Sex: Female

DRUGS (9)
  1. PENTASA [Suspect]
     Indication: COLITIS ULCERATIVE
     Dosage: 500 MG 3XS DAILY, ORAL; SEE IMAGE
     Route: 048
     Dates: start: 20061107, end: 20061120
  2. PENTASA [Suspect]
     Indication: COLITIS ULCERATIVE
     Dosage: 500 MG 3XS DAILY, ORAL; SEE IMAGE
     Route: 048
     Dates: start: 20061120, end: 20061123
  3. PENTASA [Suspect]
     Indication: COLITIS ULCERATIVE
     Dosage: 500 MG 3XS DAILY, ORAL; SEE IMAGE
     Route: 048
     Dates: start: 20061215, end: 20061220
  4. PENTASA [Suspect]
     Indication: COLITIS ULCERATIVE
     Dosage: 500 MG 3XS DAILY, ORAL; SEE IMAGE
     Route: 048
     Dates: start: 20061221, end: 20061221
  5. PENTASA [Suspect]
     Indication: COLITIS ULCERATIVE
     Dosage: 500 MG 3XS DAILY, ORAL; SEE IMAGE
     Route: 048
     Dates: start: 20061225, end: 20061228
  6. PENTASA [Suspect]
     Indication: COLITIS ULCERATIVE
     Dosage: 500 MG 3XS DAILY, ORAL; SEE IMAGE
     Route: 048
     Dates: start: 20061229, end: 20070101
  7. PENTASA [Suspect]
     Indication: COLITIS ULCERATIVE
     Dosage: 500 MG 3XS DAILY, ORAL; SEE IMAGE
     Route: 048
     Dates: start: 20070102, end: 20070105
  8. PENTASA [Suspect]
     Indication: COLITIS ULCERATIVE
     Dosage: 500 MG 3XS DAILY, ORAL; SEE IMAGE
     Route: 048
     Dates: start: 20070106
  9. FERROUS FUMARATE [Concomitant]

REACTIONS (4)
  - ANAEMIA [None]
  - HEADACHE [None]
  - PLEURISY [None]
  - PNEUMONIA [None]
